FAERS Safety Report 23866951 (Version 1)
Quarter: 2024Q2

REPORT INFORMATION
  Report Type: Spontaneous
  Country: US (occurrence: US)
  Receive Date: 20240517
  Receipt Date: 20240517
  Transmission Date: 20240716
  Serious: No
  Sender: FDA-Public Use
  Company Number: US-HALEON-2175845

PATIENT
  Age: 31 Year
  Sex: Male

DRUGS (1)
  1. PARODONTAX ACTIVE GUM REPAIR BREATH FRESHENER [Suspect]
     Active Substance: STANNOUS FLUORIDE
     Indication: Gingival disorder
     Dosage: EXPDATE:20250831
     Dates: start: 20240512, end: 20240516

REACTIONS (1)
  - Drug ineffective [Unknown]
